FAERS Safety Report 5528279-3 (Version None)
Quarter: 2007Q4

REPORT INFORMATION
  Report Type: 
  Country: None (occurrence: None)
  Receive Date: 20071128
  Receipt Date: 20071115
  Transmission Date: 20080405
  Serious: Yes (Hospitalization)
  Sender: FDA-Public Use
  Company Number: SE-GENENTECH-251750

PATIENT
  Age: 58 Year
  Sex: Male

DRUGS (1)
  1. MABTHERA [Suspect]
     Indication: HAIRY CELL LEUKAEMIA
     Dosage: UNK, UNKNOWN
     Route: 042

REACTIONS (2)
  - ASCITES [None]
  - CHYLOTHORAX [None]
